FAERS Safety Report 8909684 (Version 3)
Quarter: 2013Q2

REPORT INFORMATION
  Report Type: Spontaneous
  Country: US (occurrence: None)
  Receive Date: 20121109
  Receipt Date: 20130507
  Transmission Date: 20140414
  Serious: Yes (Other)
  Sender: FDA-Public Use
  Company Number: ADR-2012-02043

PATIENT
  Age: 43 Year
  Sex: Female

DRUGS (2)
  1. LIORESAL [Suspect]
     Indication: MUSCLE SPASTICITY
  2. LIORESAL [Suspect]
     Indication: CEREBRAL PALSY

REACTIONS (7)
  - Drug withdrawal syndrome [None]
  - Delirium tremens [None]
  - Headache [None]
  - Drug ineffective [None]
  - Musculoskeletal stiffness [None]
  - Device malfunction [None]
  - Treatment noncompliance [None]
